FAERS Safety Report 19878772 (Version 1)
Quarter: 2021Q3

REPORT INFORMATION
  Report Type: Spontaneous
  Country: US (occurrence: US)
  Receive Date: 20210924
  Receipt Date: 20210924
  Transmission Date: 20211014
  Serious: No
  Sender: FDA-Public Use
  Company Number: US-PFIZER INC-2021749822

PATIENT
  Age: 70 Year
  Sex: Female

DRUGS (1)
  1. IBRANCE [Suspect]
     Active Substance: PALBOCICLIB
     Dosage: 125 MG
     Dates: start: 20210508

REACTIONS (8)
  - Hypoaesthesia [Unknown]
  - Hyperhidrosis [Unknown]
  - Fatigue [Unknown]
  - Pollakiuria [Unknown]
  - White blood cell count decreased [Unknown]
  - Alopecia [Unknown]
  - Feeling of body temperature change [Unknown]
  - Bladder disorder [Unknown]
